FAERS Safety Report 4436641-5 (Version None)
Quarter: 2004Q3

REPORT INFORMATION
  Report Type: 
  Country: None (occurrence: None)
  Receive Date: 20040830
  Receipt Date: 20040721
  Transmission Date: 20050211
  Serious: Yes (Other)
  Sender: FDA-Public Use
  Company Number: US-BRISTOL-MYERS SQUIBB COMPANY-12649620

PATIENT
  Age: 13 Year

DRUGS (2)
  1. ABILIFY [Suspect]
  2. DEPAKOTE [Concomitant]

REACTIONS (1)
  - HEART RATE DECREASED [None]
